FAERS Safety Report 4437059-1 (Version None)
Quarter: 2004Q3

REPORT INFORMATION
  Report Type: 
  Country: None (occurrence: None)
  Receive Date: 20040830
  Receipt Date: 20040802
  Transmission Date: 20050211
  Serious: Yes (Hospitalization, Disabling)
  Sender: FDA-Public Use
  Company Number: JP-GLAXOSMITHKLINE-B0341669A

PATIENT
  Age: 74 Year
  Sex: Female

DRUGS (5)
  1. PAXIL [Suspect]
     Indication: DEPRESSION
     Dosage: 10MG SEE DOSAGE TEXT
     Route: 048
     Dates: start: 20040705, end: 20040724
  2. SERENAL [Suspect]
     Indication: DEPRESSION
     Dosage: 5MG TWICE PER DAY
     Route: 048
     Dates: start: 20040705, end: 20040721
  3. LENDORM [Suspect]
     Indication: INSOMNIA
     Dosage: .25MG PER DAY
     Route: 048
     Dates: start: 20040712, end: 20040724
  4. LORAZEPAM [Suspect]
     Indication: DEPRESSION
     Dosage: .17MG THREE TIMES PER DAY
     Route: 048
     Dates: start: 20040722, end: 20040724
  5. BROMVALERYLURE A [Concomitant]
     Indication: INSOMNIA
     Route: 048

REACTIONS (4)
  - DELIRIUM [None]
  - DEPRESSED LEVEL OF CONSCIOUSNESS [None]
  - HYPONATRAEMIA [None]
  - INAPPROPRIATE ANTIDIURETIC HORMONE SECRETION [None]
